FAERS Safety Report 8168666-0 (Version None)
Quarter: 2012Q1

REPORT INFORMATION
  Report Type: 
  Country: None (occurrence: None)
  Receive Date: 20120103
  Receipt Date: 20111115
  Transmission Date: 20120608
  Serious: No
  Sender: FDA-Public Use
  Company Number: AE-2011-003596

PATIENT
  Age: 50 Year
  Sex: Male
  Weight: 92.9874 kg

DRUGS (3)
  1. INCIVEK [Suspect]
     Dosage: 2250 MG (750 MG, 1 IN 8 HR),ORAL
     Route: 048
     Dates: start: 20110928
  2. RIBAVIRIN [Concomitant]
  3. PEGASYS [Concomitant]

REACTIONS (3)
  - RED BLOOD CELL COUNT DECREASED [None]
  - DRUG DOSE OMISSION [None]
  - WHITE BLOOD CELL COUNT DECREASED [None]
